FAERS Safety Report 4764607-4 (Version None)
Quarter: 2005Q3

REPORT INFORMATION
  Report Type: 
  Country: None (occurrence: None)
  Receive Date: 20050909
  Receipt Date: 20050831
  Transmission Date: 20060218
  Serious: Yes (Hospitalization)
  Sender: FDA-Public Use
  Company Number: 2005UW12990

PATIENT
  Age: 52 Year
  Sex: Female
  Weight: 68 kg

DRUGS (5)
  1. SEROQUEL [Suspect]
     Indication: SLEEP APNOEA SYNDROME
     Route: 048
     Dates: end: 20050622
  2. SEROQUEL [Suspect]
     Indication: ANXIETY
     Route: 048
     Dates: end: 20050622
  3. CLONIDINE [Concomitant]
  4. BUSPAR [Concomitant]
  5. REMERON [Concomitant]

REACTIONS (3)
  - DEHYDRATION [None]
  - HYPERCALCAEMIA [None]
  - MALAISE [None]
